FAERS Safety Report 7165433-1 (Version None)
Quarter: 2010Q4

REPORT INFORMATION
  Report Type: 
  Country: None (occurrence: None)
  Receive Date: 20101215
  Receipt Date: 20101207
  Transmission Date: 20110411
  Serious: Yes (Life-Threatening, Hospitalization)
  Sender: FDA-Public Use
  Company Number: US-ELI_LILLY_AND_COMPANY-US201012002570

PATIENT
  Sex: Male
  Weight: 80.54 kg

DRUGS (23)
  1. CETUXIMAB [Suspect]
     Indication: NON-SMALL CELL LUNG CANCER
     Dosage: 488 MG, MONTHLY (1/M)
     Route: 042
     Dates: start: 20100929
  2. GEMCITABINE HCL [Suspect]
     Indication: NON-SMALL CELL LUNG CANCER
     Dosage: 1920 MG, OTHER
     Route: 042
     Dates: start: 20100929
  3. CISPLATIN [Suspect]
     Indication: NON-SMALL CELL LUNG CANCER
     Dosage: 144 MG, UNK
     Dates: start: 20100929
  4. CLARITIN [Concomitant]
     Indication: HYPERSENSITIVITY
     Dosage: 10 MG, 2/D
     Route: 048
     Dates: start: 20100912
  5. AMLODIPINE [Concomitant]
     Indication: HYPERTENSION
     Dosage: 10 MG, DAILY (1/D)
     Route: 048
     Dates: start: 20000101
  6. ATENOLOL [Concomitant]
     Indication: ANGINA PECTORIS
     Dosage: 25 MG, DAILY (1/D)
     Route: 048
     Dates: start: 20000101
  7. WELLBUTRIN [Concomitant]
     Indication: DEPRESSION
     Dosage: 150 MG, DAILY (1/D)
     Route: 048
     Dates: start: 20000101
  8. ALBUTEROL [Concomitant]
     Indication: CHRONIC OBSTRUCTIVE PULMONARY DISEASE
     Dosage: 90 D/F, 2/D
     Route: 055
     Dates: start: 20000101
  9. NOVOLIN R [Concomitant]
     Indication: DIABETES MELLITUS
     Route: 058
     Dates: start: 20100821
  10. METFORMIN HCL [Concomitant]
     Indication: DIABETES MELLITUS
     Dosage: 500 MG, 2/D
     Route: 048
     Dates: start: 20090901
  11. PRAVASTATIN [Concomitant]
     Indication: HYPERLIPIDAEMIA
     Dosage: 20 MG, DAILY (1/D)
     Route: 048
     Dates: start: 20000101
  12. NITROGLYCERIN [Concomitant]
     Indication: ANGINA PECTORIS
     Dosage: 2.5 MEQ, 3/D
     Route: 047
     Dates: start: 20000101
  13. NITROSPRAY [Concomitant]
     Indication: ANGINA PECTORIS
     Dosage: UNK, AS NEEDED
     Route: 048
     Dates: start: 20000101
  14. LANTUS [Concomitant]
     Indication: DIABETES MELLITUS
     Dosage: 10 U, EACH EVENING
     Route: 048
     Dates: start: 20100920
  15. DARVOCET [Concomitant]
     Indication: PAIN
     Dosage: UNK, AS NEEDED
     Route: 048
     Dates: start: 20100924
  16. PRILOSEC [Concomitant]
     Indication: DYSPEPSIA
     Dosage: 40 MG, DAILY (1/D)
     Route: 047
     Dates: start: 20101006
  17. COMPAZINE [Concomitant]
     Indication: NAUSEA
     Dosage: 10 MG, AS NEEDED
     Route: 048
     Dates: start: 20100929
  18. ATIVAN [Concomitant]
     Indication: NAUSEA
     Dosage: UNK, AS NEEDED
     Route: 048
     Dates: start: 20100929
  19. MARINOL [Concomitant]
     Indication: NAUSEA
     Dosage: 2.5 MG, 2/D
     Route: 048
     Dates: start: 20101103
  20. HYOSCYAMINE SULFATE [Concomitant]
     Indication: COUGH
     Dosage: 0.125 MG/KG, UNK
     Route: 048
     Dates: start: 20101027
  21. DIFLUCAN [Concomitant]
     Indication: CANDIDIASIS
     Dosage: 100 MG, DAILY (1/D)
     Route: 048
     Dates: start: 20101110
  22. DECADRON /NET/ [Concomitant]
     Indication: ASTHENIA
     Dosage: 2 MG, 2/D
     Route: 048
     Dates: start: 20101011
  23. ANZEMET [Concomitant]
     Dosage: 100 MG, DAILY (1/D)
     Route: 048
     Dates: start: 20101011

REACTIONS (1)
  - PULMONARY EMBOLISM [None]
